FAERS Safety Report 10446114 (Version 1)
Quarter: 2014Q3

REPORT INFORMATION
  Report Type: Report from Study
  Country: JP (occurrence: JP)
  Receive Date: 20140910
  Receipt Date: 20140910
  Transmission Date: 20150326
  Serious: No
  Sender: FDA-Public Use
  Company Number: PHHY2014JP116855

PATIENT
  Age: 39 Year
  Sex: Female

DRUGS (2)
  1. AMN107 [Suspect]
     Active Substance: NILOTINIB
     Dosage: 600 MG, DAILY
     Dates: start: 201211
  2. AMN107 [Suspect]
     Active Substance: NILOTINIB
     Indication: CHRONIC MYELOID LEUKAEMIA
     Dosage: 300 MG, UNK

REACTIONS (5)
  - Alopecia [Unknown]
  - Drug prescribing error [Unknown]
  - Platelet count decreased [Unknown]
  - Liver function test abnormal [Unknown]
  - Chest pain [Recovered/Resolved]

NARRATIVE: CASE EVENT DATE: 201211
